FAERS Safety Report 6308243-7 (Version None)
Quarter: 2009Q3

REPORT INFORMATION
  Report Type: 
  Country: None (occurrence: None)
  Receive Date: 20090813
  Receipt Date: 20090810
  Transmission Date: 20100115
  Serious: Yes (Death, Life-Threatening, Hospitalization, Other)
  Sender: FDA-Public Use
  Company Number: JP-BAYER-200813219BYL

PATIENT
  Age: 72 Year
  Sex: Male
  Weight: 66 kg

DRUGS (16)
  1. NEXAVAR [Suspect]
     Indication: RENAL CELL CARCINOMA STAGE IV
     Dosage: TOTAL DAILY DOSE: 800 MG  UNIT DOSE: 200 MG
     Route: 048
     Dates: start: 20081204, end: 20081223
  2. NEXAVAR [Suspect]
     Dosage: UNIT DOSE: 200 MG
     Route: 048
     Dates: start: 20090125, end: 20090212
  3. NEXAVAR [Suspect]
     Dosage: UNIT DOSE: 200 MG
     Route: 048
     Dates: start: 20090213, end: 20090226
  4. NEXAVAR [Suspect]
     Dosage: UNIT DOSE: 200 MG
     Route: 048
     Dates: start: 20090227, end: 20090707
  5. NEXAVAR [Suspect]
     Dosage: UNIT DOSE: 200 MG
     Route: 048
     Dates: start: 20090711, end: 20090711
  6. RINDERON [Concomitant]
     Indication: PROPHYLAXIS
     Route: 048
  7. GASTER D [Concomitant]
     Route: 048
  8. DEPAKEN R [Concomitant]
     Route: 048
  9. UBRETID [Concomitant]
     Route: 048
  10. HARNAL D [Concomitant]
     Route: 048
  11. HYPEN [Concomitant]
     Route: 048
  12. CEREGASRON [Concomitant]
     Route: 048
  13. SORELMON [Concomitant]
     Route: 048
     Dates: end: 20081204
  14. SUMIFERON DS [Concomitant]
     Dosage: FROM MONDAY TO FRIDAY
     Route: 065
     Dates: end: 20081225
  15. OXYCONTIN [Concomitant]
     Route: 048
     Dates: start: 20090614, end: 20090706
  16. DUROTEP [Concomitant]
     Route: 062
     Dates: start: 20090707, end: 20090722

REACTIONS (10)
  - BLOOD PRESSURE INCREASED [None]
  - ERYTHEMA [None]
  - FLANK PAIN [None]
  - HYPOCHLORAEMIA [None]
  - HYPONATRAEMIA [None]
  - HYPOTHYROIDISM [None]
  - PALMAR-PLANTAR ERYTHRODYSAESTHESIA SYNDROME [None]
  - PLATELET COUNT DECREASED [None]
  - RENAL CELL CARCINOMA [None]
  - STOMATITIS [None]
